FAERS Safety Report 9347719 (Version 1)
Quarter: 2013Q2

REPORT INFORMATION
  Report Type: Spontaneous
  Country: US (occurrence: None)
  Receive Date: 20130611
  Receipt Date: 20130611
  Transmission Date: 20140414
  Serious: No
  Sender: FDA-Public Use
  Company Number: None

PATIENT
  Age: 82 Year
  Sex: Male
  Weight: 99.79 kg

DRUGS (1)
  1. BROVANA [Suspect]
     Indication: BRONCHIAL DISORDER
     Dosage: 1 VIAL 2XDAILY.
     Route: 048
     Dates: start: 20130607, end: 20130610

REACTIONS (4)
  - Tremor [None]
  - Dry throat [None]
  - Ageusia [None]
  - Muscle spasms [None]
